FAERS Safety Report 9133970 (Version 1)
Quarter: 2013Q1

REPORT INFORMATION
  Report Type: Spontaneous
  Country: US (occurrence: US)
  Receive Date: 20130304
  Receipt Date: 20130304
  Transmission Date: 20140127
  Serious: No
  Sender: FDA-Public Use
  Company Number: US-009507513-1302USA013643

PATIENT
  Sex: Female
  Weight: 64.4 kg

DRUGS (1)
  1. IMPLANON [Suspect]
     Indication: CONTRACEPTION
     Dosage: OVER 3 YEARS
     Route: 059
     Dates: start: 200812

REACTIONS (4)
  - Device difficult to use [Unknown]
  - Incorrect drug administration duration [Unknown]
  - Device dislocation [Unknown]
  - No adverse event [Unknown]
